FAERS Safety Report 14597640 (Version 12)
Quarter: 2025Q2

REPORT INFORMATION
  Report Type: Report from Study
  Country: DE (occurrence: DE)
  Receive Date: 20180305
  Receipt Date: 20250421
  Transmission Date: 20250716
  Serious: Yes (Hospitalization, Other)
  Sender: MERCK SHARP & DOHME LLC
  Company Number: None

PATIENT
  Age: 57 Year
  Sex: Male

DRUGS (26)
  1. VARICELLA-ZOSTER VIRUS STRAIN OKA/MERCK LIVE ANTIGEN [Suspect]
     Active Substance: VARICELLA-ZOSTER VIRUS STRAIN OKA/MERCK LIVE ANTIGEN
     Indication: Product used for unknown indication
  2. DIMETHINDENE [Suspect]
     Active Substance: DIMETHINDENE
     Indication: Product used for unknown indication
  3. CORTISONE [Suspect]
     Active Substance: CORTISONE
     Indication: Peroneal nerve palsy
     Route: 042
     Dates: start: 20211025, end: 20211108
  4. CORTISONE [Suspect]
     Active Substance: CORTISONE
     Indication: Peroneal nerve palsy
     Route: 037
     Dates: start: 20211121, end: 20211126
  5. CORTISONE [Suspect]
     Active Substance: CORTISONE
     Indication: Peroneal nerve palsy
     Route: 037
     Dates: start: 20240219, end: 20240222
  6. CORTISONE [Suspect]
     Active Substance: CORTISONE
     Indication: Peroneal nerve palsy
     Route: 037
     Dates: start: 20220822, end: 20220825
  7. CORTISONE [Suspect]
     Active Substance: CORTISONE
     Indication: Peroneal nerve palsy
     Dosage: START DATE: 06-FEB-2020
     Route: 042
     Dates: start: 20200206, end: 20200210
  8. OCREVUS [Suspect]
     Active Substance: OCRELIZUMAB
     Indication: Primary progressive multiple sclerosis
     Route: 042
     Dates: start: 20180308
  9. OCREVUS [Suspect]
     Active Substance: OCRELIZUMAB
     Indication: Primary progressive multiple sclerosis
     Route: 042
     Dates: start: 20180913, end: 20180913
  10. OCREVUS [Suspect]
     Active Substance: OCRELIZUMAB
     Indication: Primary progressive multiple sclerosis
     Route: 042
     Dates: start: 20200218
  11. OCREVUS [Suspect]
     Active Substance: OCRELIZUMAB
     Indication: Primary progressive multiple sclerosis
     Dosage: 600 MG
     Route: 042
     Dates: start: 20180222
  12. OCREVUS [Suspect]
     Active Substance: OCRELIZUMAB
     Indication: Primary progressive multiple sclerosis
     Route: 042
     Dates: start: 20190315
  13. OCREVUS [Suspect]
     Active Substance: OCRELIZUMAB
     Indication: Primary progressive multiple sclerosis
     Route: 042
     Dates: start: 20190902
  14. OCREVUS [Suspect]
     Active Substance: OCRELIZUMAB
     Indication: Primary progressive multiple sclerosis
     Route: 042
     Dates: start: 20201014
  15. PREGABALIN [Suspect]
     Active Substance: PREGABALIN
     Indication: Product used for unknown indication
  16. DULOXETINE [Concomitant]
     Active Substance: DULOXETINE
  17. BACLOFEN [Concomitant]
     Active Substance: BACLOFEN
     Indication: Muscle spasticity
     Route: 048
  18. BACLOFEN [Concomitant]
     Active Substance: BACLOFEN
     Indication: Muscle spasticity
     Dosage: ADMINISTRATION ON ONE DAY EVERY 2 WEEKS
  19. BACLOFEN [Concomitant]
     Active Substance: BACLOFEN
     Indication: Muscle spasticity
     Route: 048
  20. BACLOFEN [Concomitant]
     Active Substance: BACLOFEN
     Indication: Muscle spasticity
     Dosage: DOSE DESCRIPTION : 1-1-1
     Route: 048
  21. BACLOFEN [Concomitant]
     Active Substance: BACLOFEN
     Indication: Muscle spasticity
     Dosage: ADMINISTRATION ON ONE DAY EVERY 2 WEEKS
  22. BACLOFEN [Concomitant]
     Active Substance: BACLOFEN
     Indication: Muscle spasticity
     Route: 048
  23. IBUPROFEN [Concomitant]
     Active Substance: IBUPROFEN
  24. BOTOX [Concomitant]
     Active Substance: ONABOTULINUMTOXINA
     Indication: Muscle spasticity
     Dosage: INTO THE RIGHT ARM
  25. NOVAMIN SULFONE [Concomitant]
  26. STERILE DILUENT (WATER) [Suspect]
     Active Substance: WATER

REACTIONS (28)
  - Pelvic fracture [Recovered/Resolved]
  - Road traffic accident [Unknown]
  - Multiple sclerosis [Not Recovered/Not Resolved]
  - Muscle spasticity [Recovering/Resolving]
  - Clavicle fracture [Recovered/Resolved]
  - Rib fracture [Recovered/Resolved]
  - Peroneal nerve palsy [Recovering/Resolving]
  - Upper limb fracture [Recovered/Resolved]
  - Femoral neck fracture [Recovered/Resolved]
  - Arthralgia [Not Recovered/Not Resolved]
  - Neck pain [Not Recovered/Not Resolved]
  - Balance disorder [Recovered/Resolved]
  - Asthenia [Recovered/Resolved]
  - Pain in extremity [Recovered/Resolved]
  - Fall [Unknown]
  - Liver function test increased [Recovered/Resolved]
  - Bursitis [Recovered/Resolved]
  - Initial insomnia [Recovered/Resolved]
  - Nasopharyngitis [Recovered/Resolved]
  - Fatigue [Recovered/Resolved]
  - B-lymphocyte count decreased [Not Recovered/Not Resolved]
  - Swelling face [Recovered/Resolved]
  - Erythema [Recovered/Resolved]
  - Balance disorder [Not Recovered/Not Resolved]
  - Fatigue [Recovered/Resolved]
  - Headache [Not Recovered/Not Resolved]
  - Muscular weakness [Not Recovered/Not Resolved]
  - Tremor [Not Recovered/Not Resolved]

NARRATIVE: CASE EVENT DATE: 20180222
